FAERS Safety Report 9529310 (Version 1)
Quarter: 2013Q3

REPORT INFORMATION
  Report Type: Spontaneous
  Country: PL (occurrence: PL)
  Receive Date: 20130917
  Receipt Date: 20130917
  Transmission Date: 20140515
  Serious: Yes (Life-Threatening, Hospitalization, Disabling)
  Sender: FDA-Public Use
  Company Number: PL-B.I. PHARMACEUTICALS,INC./RIDGEFIELD-2013-BI-28899PN

PATIENT
  Age: 76 Year
  Sex: Female

DRUGS (5)
  1. PRADAXA [Suspect]
     Indication: ATRIAL FIBRILLATION
     Dosage: 300 MG
     Route: 048
     Dates: start: 20130826, end: 20130910
  2. BISOCARD [Concomitant]
     Indication: HYPERTENSION
     Dosage: 10 MG
     Route: 048
  3. DIGOXIN [Concomitant]
     Indication: ATRIAL FIBRILLATION
     Dosage: 100 MCG
     Route: 048
  4. TIALORID MITE [Concomitant]
     Indication: HYPERTENSION
     Route: 048
  5. VASILIP [Concomitant]
     Indication: HYPERCHOLESTEROLAEMIA
     Dosage: 20 MG
     Route: 048

REACTIONS (2)
  - Ischaemic stroke [Not Recovered/Not Resolved]
  - Convulsion [Not Recovered/Not Resolved]
